FAERS Safety Report 18642101 (Version 1)
Quarter: 2020Q4

REPORT INFORMATION
  Report Type: Spontaneous
  Country: US (occurrence: US)
  Receive Date: 20201219
  Receipt Date: 20201219
  Transmission Date: 20210114
  Serious: Yes (Other)
  Sender: FDA-Public Use
  Company Number: None

PATIENT
  Age: 25 Year
  Sex: Female

DRUGS (2)
  1. BUPRENORPHINE HCL/NALOXONE HCL [Suspect]
     Active Substance: BUPRENORPHINE\NALOXONE
  2. BUPRENORPHINE HCL/NALOXONE HCL [Concomitant]
     Active Substance: BUPRENORPHINE\NALOXONE
     Dates: start: 20201112

REACTIONS (4)
  - Feeling abnormal [None]
  - Vomiting [None]
  - Hypophagia [None]
  - Insomnia [None]

NARRATIVE: CASE EVENT DATE: 20201216
